FAERS Safety Report 15952941 (Version 2)
Quarter: 2019Q2

REPORT INFORMATION
  Report Type: Spontaneous
  Country: US (occurrence: US)
  Receive Date: 20190211
  Receipt Date: 20190408
  Transmission Date: 20190711
  Serious: Yes (Other)
  Sender: FDA-Public Use
  Company Number: US-ROCHE-2227059

PATIENT
  Sex: Female
  Weight: 81.72 kg

DRUGS (10)
  1. PROGRAF [Concomitant]
     Active Substance: TACROLIMUS\TACROLIMUS ANHYDROUS
     Dosage: 2 TABLETS IN MORNING AND IN THE AFTERNOON ;ONGOING: YES
     Route: 065
  2. CALAN [Concomitant]
     Active Substance: VERAPAMIL HYDROCHLORIDE
     Indication: HYPERTENSION
     Dosage: ONGOING: YES
     Route: 065
  3. CELLCEPT [Suspect]
     Active Substance: MYCOPHENOLATE MOFETIL\MYCOPHENOLATE MOFETIL HYDROCHLORIDE
     Dosage: ONCE IN MORNING AND ONCE IN EVENING ;ONGOING: YES  WHITE PILL
     Route: 065
  4. CELLCEPT [Suspect]
     Active Substance: MYCOPHENOLATE MOFETIL\MYCOPHENOLATE MOFETIL HYDROCHLORIDE
     Indication: RENAL TRANSPLANT
     Dosage: ONGOING: NO
     Route: 065
  5. CELLCEPT [Suspect]
     Active Substance: MYCOPHENOLATE MOFETIL\MYCOPHENOLATE MOFETIL HYDROCHLORIDE
     Indication: RENAL TRANSPLANT
     Dosage: ORANGE AND BLUE CAPSULE
     Route: 065
  6. CELLCEPT [Suspect]
     Active Substance: MYCOPHENOLATE MOFETIL\MYCOPHENOLATE MOFETIL HYDROCHLORIDE
     Dosage: ORANGE AND BLUE CAPSULE, ONGOING: NO
     Route: 065
  7. PREDNISONE. [Concomitant]
     Active Substance: PREDNISONE
     Dosage: ONGOING: YES
     Route: 065
  8. CELLCEPT [Suspect]
     Active Substance: MYCOPHENOLATE MOFETIL\MYCOPHENOLATE MOFETIL HYDROCHLORIDE
     Dosage: ONGOING: NO, LOWER DOSE
     Route: 065
  9. CELLCEPT [Suspect]
     Active Substance: MYCOPHENOLATE MOFETIL\MYCOPHENOLATE MOFETIL HYDROCHLORIDE
     Indication: RENAL TRANSPLANT
     Dosage: ONCE IN MORNING AND ONCE IN EVENING ;ONGOING: YES
     Route: 065
     Dates: start: 2000
  10. CELLCEPT [Suspect]
     Active Substance: MYCOPHENOLATE MOFETIL\MYCOPHENOLATE MOFETIL HYDROCHLORIDE
     Dosage: ONGOING: NO, LAVENDER TABLET
     Route: 065
     Dates: start: 2016

REACTIONS (24)
  - Genital rash [Not Recovered/Not Resolved]
  - Neoplasm malignant [Recovering/Resolving]
  - Blood pressure fluctuation [Recovering/Resolving]
  - Abdominal pain upper [Recovering/Resolving]
  - Peripheral swelling [Not Recovered/Not Resolved]
  - Confusional state [Recovering/Resolving]
  - Feeling abnormal [Recovering/Resolving]
  - Diarrhoea [Recovering/Resolving]
  - Vision blurred [Recovering/Resolving]
  - Impaired work ability [Unknown]
  - Deafness [Recovering/Resolving]
  - Allergic reaction to excipient [Not Recovered/Not Resolved]
  - Drug intolerance [Not Recovered/Not Resolved]
  - Balance disorder [Recovering/Resolving]
  - Nasal congestion [Recovering/Resolving]
  - Sleep disorder [Recovering/Resolving]
  - Asthenia [Recovering/Resolving]
  - Back pain [Recovering/Resolving]
  - Product quality issue [Unknown]
  - Productive cough [Recovering/Resolving]
  - Memory impairment [Recovering/Resolving]
  - Constipation [Recovering/Resolving]
  - Drug hypersensitivity [Unknown]
  - Cardiac disorder [Not Recovered/Not Resolved]

NARRATIVE: CASE EVENT DATE: 2018
